FAERS Safety Report 9109069 (Version 7)
Quarter: 2014Q3

REPORT INFORMATION
  Report Type: Spontaneous
  Country: US (occurrence: US)
  Receive Date: 20130222
  Receipt Date: 20140729
  Transmission Date: 20150326
  Serious: Yes (Hospitalization, Other)
  Sender: FDA-Public Use
  Company Number: US-009507513-1302USA009351

PATIENT
  Sex: Male
  Weight: 73.47 kg

DRUGS (4)
  1. WELLBUTRIN XL [Concomitant]
     Active Substance: BUPROPION HYDROCHLORIDE
     Indication: ANXIETY
     Dosage: 300 MG, DAILY
     Route: 048
     Dates: start: 19981229, end: 201304
  2. WELLBUTRIN XL [Concomitant]
     Active Substance: BUPROPION HYDROCHLORIDE
     Indication: DEPRESSION
  3. PROPECIA [Suspect]
     Active Substance: FINASTERIDE
     Indication: ALOPECIA
     Dosage: 1 MG, DAILY
     Route: 048
     Dates: start: 19990208, end: 20110509
  4. FINASTERIDE. [Suspect]
     Active Substance: FINASTERIDE
     Indication: ALOPECIA
     Dosage: 1 MG, UNK
     Dates: start: 2001

REACTIONS (32)
  - Cataract [Unknown]
  - Change of bowel habit [Recovering/Resolving]
  - Sexual dysfunction [Not Recovered/Not Resolved]
  - Depression [Unknown]
  - Hernia repair [Unknown]
  - Cognitive disorder [Not Recovered/Not Resolved]
  - Inguinal hernia [Unknown]
  - Cataract operation [Unknown]
  - Psoriasis [Unknown]
  - Benign prostatic hyperplasia [Unknown]
  - Erectile dysfunction [Unknown]
  - Ejaculation failure [Unknown]
  - Chest pain [Unknown]
  - Panic attack [Unknown]
  - Neoplasm skin [Unknown]
  - Anxiety [Recovering/Resolving]
  - Anxiety [Not Recovered/Not Resolved]
  - Haemorrhoids [Unknown]
  - Haematuria [Unknown]
  - Eyelid irritation [Unknown]
  - Deafness unilateral [Unknown]
  - Tinnitus [Unknown]
  - Insomnia [Unknown]
  - Renal impairment [Unknown]
  - Diarrhoea [Unknown]
  - Rectal haemorrhage [Unknown]
  - Hyperacusis [Unknown]
  - Dyspepsia [Recovered/Resolved]
  - Lethargy [Unknown]
  - Libido decreased [Unknown]
  - Anal haemorrhage [Unknown]
  - Gastrointestinal disorder [Recovered/Resolved]

NARRATIVE: CASE EVENT DATE: 20070405
